FAERS Safety Report 6311599-2 (Version None)
Quarter: 2009Q3

REPORT INFORMATION
  Report Type: 
  Country: None (occurrence: None)
  Receive Date: 20090817
  Receipt Date: 20090810
  Transmission Date: 20100115
  Serious: Yes (Hospitalization)
  Sender: FDA-Public Use
  Company Number: A0801345A

PATIENT
  Age: 61 Year
  Sex: Male

DRUGS (1)
  1. LAMICTAL [Suspect]
     Indication: BIPOLAR DISORDER
     Dosage: 50MG PER DAY
     Route: 048
     Dates: start: 20080901

REACTIONS (4)
  - GALLBLADDER DISORDER [None]
  - PANCREATITIS [None]
  - RENAL NEOPLASM [None]
  - RENAL SURGERY [None]
